FAERS Safety Report 11073474 (Version 1)
Quarter: 2015Q2

REPORT INFORMATION
  Report Type: Spontaneous
  Country: PT (occurrence: PT)
  Receive Date: 20150428
  Receipt Date: 20150428
  Transmission Date: 20150821
  Serious: Yes (Life-Threatening, Disabling)
  Sender: FDA-Public Use
  Company Number: PT-TEVA-556410ISR

PATIENT
  Sex: Male

DRUGS (7)
  1. LERCANIDIPINA [Concomitant]
  2. FINASTERIDA [Concomitant]
     Dosage: DOSAGEM 5 MG
  3. AZITROMICINA TEVA 500 MG COMPRIMIDOS [Suspect]
     Active Substance: AZITHROMYCIN DIHYDRATE
     Dosage: 1 DOSAGE FORMS DAILY;
     Route: 048
     Dates: start: 2014, end: 2014
  4. EXFORGE [Concomitant]
     Active Substance: AMLODIPINE BESYLATE\VALSARTAN
     Route: 048
  5. PANTOPRAZOLE SODIUM. [Concomitant]
     Active Substance: PANTOPRAZOLE SODIUM
     Dosage: DOSAGEM 20 MG
  6. SINVASTATINA [Concomitant]
     Active Substance: SIMVASTATIN
  7. RISIDON [Concomitant]
     Active Substance: METFORMIN HYDROCHLORIDE
     Dosage: 2 DOSAGE FORMS DAILY;
     Route: 048

REACTIONS (4)
  - Lung disorder [Not Recovered/Not Resolved]
  - Weight decreased [Not Recovered/Not Resolved]
  - Amnestic disorder [Not Recovered/Not Resolved]
  - Cardiac disorder [Not Recovered/Not Resolved]

NARRATIVE: CASE EVENT DATE: 2014
